FAERS Safety Report 21273624 (Version 1)
Quarter: 2022Q3

REPORT INFORMATION
  Report Type: Spontaneous
  Country: US (occurrence: None)
  Receive Date: 20220830
  Receipt Date: 20220830
  Transmission Date: 20221027
  Serious: Yes (Other)
  Sender: FDA-Public Use
  Company Number: None

PATIENT
  Age: 51 Year
  Sex: Female

DRUGS (1)
  1. CAPECITABINE [Suspect]
     Active Substance: CAPECITABINE
     Dosage: 4000MG BID ORAL
     Route: 048

REACTIONS (12)
  - Therapy cessation [None]
  - Fatigue [None]
  - Paronychia [None]
  - Diarrhoea [None]
  - Arthralgia [None]
  - Arthralgia [None]
  - Gait disturbance [None]
  - Palmar-plantar erythrodysaesthesia syndrome [None]
  - Rash [None]
  - Haemorrhage [None]
  - Feeling abnormal [None]
  - Impaired work ability [None]

NARRATIVE: CASE EVENT DATE: 20220830
